FAERS Safety Report 6186916-7 (Version None)
Quarter: 2009Q2

REPORT INFORMATION
  Report Type: 
  Country: None (occurrence: None)
  Receive Date: 20090512
  Receipt Date: 20090508
  Transmission Date: 20091009
  Serious: No
  Sender: FDA-Public Use
  Company Number: US-B.I. PHARMACEUTICALS,INC./RIDGEFIELD-2009-BP-05845BP

PATIENT
  Age: 67 Year
  Sex: Female

DRUGS (2)
  1. ZANTAC 75 [Suspect]
     Indication: DYSPEPSIA
     Dosage: 150MG
     Route: 048
     Dates: start: 19990101, end: 20090201
  2. NEXIUM [Concomitant]
     Indication: ULCER
     Route: 048
     Dates: start: 20090201

REACTIONS (4)
  - EYELID DISORDER [None]
  - PLASTIC SURGERY TO THE FACE [None]
  - WEIGHT DECREASED [None]
  - WEIGHT INCREASED [None]
